FAERS Safety Report 5546088-6 (Version None)
Quarter: 2007Q4

REPORT INFORMATION
  Report Type: 
  Country: None (occurrence: None)
  Receive Date: 20071211
  Receipt Date: 20071002
  Transmission Date: 20080405
  Serious: No
  Sender: FDA-Public Use
  Company Number: US-BRISTOL-MYERS SQUIBB COMPANY-13927041

PATIENT
  Age: 65 Year
  Sex: Male
  Weight: 91 kg

DRUGS (7)
  1. EMSAM [Suspect]
     Indication: DEPRESSION
     Route: 062
     Dates: start: 20070917
  2. ZOCOR [Concomitant]
  3. HYDROCHLOROTHIAZIDE [Concomitant]
  4. LUNESTA [Concomitant]
  5. AMBIEN [Concomitant]
  6. METFORMIN HCL [Concomitant]
  7. NEXIUM [Concomitant]

REACTIONS (5)
  - CLUMSINESS [None]
  - COORDINATION ABNORMAL [None]
  - DRUG INEFFECTIVE [None]
  - MUSCULOSKELETAL STIFFNESS [None]
  - NERVOUSNESS [None]
